FAERS Safety Report 11183349 (Version 2)
Quarter: 2015Q3

REPORT INFORMATION
  Report Type: Spontaneous
  Country: US (occurrence: US)
  Receive Date: 20150612
  Receipt Date: 20150805
  Transmission Date: 20151125
  Serious: Yes (Hospitalization, Other)
  Sender: FDA-Public Use
  Company Number: US-009507513-1506USA004173

PATIENT
  Age: 76 Year
  Sex: Male
  Weight: 107.7 kg

DRUGS (2)
  1. FERROUS SULFATE [Concomitant]
     Active Substance: FERROUS SULFATE\FERROUS SULFATE, DRIED
     Dosage: UNK, TID
  2. JANUVIA [Suspect]
     Active Substance: SITAGLIPTIN PHOSPHATE
     Indication: TYPE 2 DIABETES MELLITUS
     Dosage: 50 MG, QAM
     Route: 048
     Dates: start: 20131031, end: 20140522

REACTIONS (4)
  - Endoscopy small intestine abnormal [Recovering/Resolving]
  - Blood triglycerides increased [Recovering/Resolving]
  - Chronic kidney disease [Recovering/Resolving]
  - Pancreatitis [Recovering/Resolving]

NARRATIVE: CASE EVENT DATE: 20140522
